FAERS Safety Report 5119385-6 (Version None)
Quarter: 2006Q3

REPORT INFORMATION
  Report Type: 
  Country: None (occurrence: None)
  Receive Date: 20060928
  Receipt Date: 20060913
  Transmission Date: 20061208
  Serious: Yes (Hospitalization, Other)
  Sender: FDA-Public Use
  Company Number: 2006RL000177

PATIENT
  Age: 86 Year
  Sex: Female
  Weight: 49.8957 kg

DRUGS (15)
  1. RYTHMOL [Suspect]
     Indication: ATRIAL FIBRILLATION
     Dosage: 225 MG; BID; PO
     Route: 048
     Dates: start: 20050830, end: 20060817
  2. WARFARIN SODIUM [Concomitant]
  3. METOPROLOL TARTRATE [Concomitant]
  4. APAP W/CODEINE [Concomitant]
  5. AMBIEN [Concomitant]
  6. MIACALCIN [Concomitant]
  7. PRAVACHOL [Concomitant]
  8. ATACAND [Concomitant]
  9. ROBAXIN [Concomitant]
  10. EVISTA [Concomitant]
  11. DETROL [Concomitant]
  12. ACIPHEX [Concomitant]
  13. PAXIL [Concomitant]
  14. METOPROLOL TARTRATE [Concomitant]
  15. AMIODARONE [Concomitant]

REACTIONS (6)
  - ATRIAL FIBRILLATION [None]
  - DRUG INEFFECTIVE [None]
  - ELECTROCARDIOGRAM ABNORMAL [None]
  - FALL [None]
  - PLEURAL EFFUSION [None]
  - RIB FRACTURE [None]
